FAERS Safety Report 12694921 (Version 1)
Quarter: 2016Q3

REPORT INFORMATION
  Report Type: Spontaneous
  Country: US (occurrence: US)
  Receive Date: 20160829
  Receipt Date: 20160829
  Transmission Date: 20161109
  Serious: Yes (Other)
  Sender: FDA-Public Use
  Company Number: US-PFIZER INC-2016401583

PATIENT
  Age: 4 Decade

DRUGS (1)
  1. DYLOJECT [Suspect]
     Active Substance: DICLOFENAC SODIUM
     Dosage: UNK

REACTIONS (3)
  - Bradycardia [Unknown]
  - Hypotension [Unknown]
  - Abdominal discomfort [Unknown]
